FAERS Safety Report 20207269 (Version 1)
Quarter: 2021Q4

REPORT INFORMATION
  Report Type: Spontaneous
  Country: US (occurrence: None)
  Receive Date: 20211219
  Receipt Date: 20211219
  Transmission Date: 20220303
  Serious: Yes (Hospitalization)
  Sender: FDA-Public Use
  Company Number: None

PATIENT
  Age: 55 Year
  Sex: Male
  Weight: 98 kg

DRUGS (1)
  1. ASPIRIN [Suspect]
     Active Substance: ASPIRIN
     Indication: Hyperlipidaemia
     Dates: start: 20170625, end: 20170625

REACTIONS (7)
  - Drug hypersensitivity [None]
  - Rash [None]
  - Stevens-Johnson syndrome [None]
  - Blister [None]
  - Erythema multiforme [None]
  - Pruritus [None]
  - Rash [None]

NARRATIVE: CASE EVENT DATE: 20170625
